FAERS Safety Report 22921323 (Version 2)
Quarter: 2024Q3

REPORT INFORMATION
  Report Type: Spontaneous
  Country: US (occurrence: None)
  Receive Date: 20230908
  Receipt Date: 20240906
  Transmission Date: 20241016
  Serious: No
  Sender: DOMPE FARMACEUTICI
  Company Number: US-FARMAPROD-202305-1492

PATIENT
  Sex: Female
  Weight: 47.36 kg

DRUGS (15)
  1. OXERVATE [Suspect]
     Active Substance: CENEGERMIN-BKBJ
     Indication: Neurotrophic keratopathy
     Route: 047
     Dates: start: 20230511
  2. OXERVATE [Suspect]
     Active Substance: CENEGERMIN-BKBJ
  3. LOTEMAX [Concomitant]
     Active Substance: LOTEPREDNOL ETABONATE
  4. FLAXSEED MEAL [Concomitant]
  5. CENTRUM ADULT 50 FRESH-FRUITY [Concomitant]
  6. REFRESH CELLUVISC [Concomitant]
     Active Substance: CARBOXYMETHYLCELLULOSE SODIUM
     Dosage: DROPER GEL
  7. OFLOXACIN [Concomitant]
     Active Substance: OFLOXACIN
  8. REFRESH OPTIVE [Concomitant]
     Active Substance: CARBOXYMETHYLCELLULOSE SODIUM\GLYCERIN
     Dosage: 0.5%-0.9%
  9. XIIDRA [Concomitant]
     Active Substance: LIFITEGRAST
  10. FISH OIL-VIT D3 [Concomitant]
     Dosage: 360 MG-1000
  11. VITAMIN D3 [Concomitant]
     Active Substance: CHOLECALCIFEROL
  12. VITAMIN D3 [Concomitant]
     Active Substance: CHOLECALCIFEROL
  13. CEVIMELINE HYDROCHLORIDE [Concomitant]
     Active Substance: CEVIMELINE HYDROCHLORIDE
  14. ALENDRONATE SODIUM [Concomitant]
     Active Substance: ALENDRONATE SODIUM
  15. VITAMIN D3 [Concomitant]
     Active Substance: CHOLECALCIFEROL

REACTIONS (2)
  - Eye pain [Unknown]
  - Drug ineffective [Unknown]
